FAERS Safety Report 25992934 (Version 1)
Quarter: 2025Q4

REPORT INFORMATION
  Report Type: Spontaneous
  Country: EU (occurrence: EU)
  Receive Date: 20251103
  Receipt Date: 20251103
  Transmission Date: 20260117
  Serious: Yes (Other)
  Sender: ASTELLAS
  Company Number: EU-PFIZER INC-PV202500125079

PATIENT
  Age: 69 Year
  Sex: Male

DRUGS (3)
  1. ENZALUTAMIDE [Suspect]
     Active Substance: ENZALUTAMIDE
     Indication: Prostate cancer metastatic
     Dosage: 160 MG, DAILY
     Route: 065
  2. TALAZOPARIB [Suspect]
     Active Substance: TALAZOPARIB
     Indication: Prostate cancer metastatic
     Dosage: 0.5 MG, DAILY
     Route: 065
     Dates: start: 20250301, end: 2025
  3. TALAZOPARIB [Suspect]
     Active Substance: TALAZOPARIB
     Dosage: 0.35 MG, DAILY
     Route: 065
     Dates: start: 2025

REACTIONS (3)
  - Neutropenia [Unknown]
  - Anaemia [Unknown]
  - Asthenia [Unknown]

NARRATIVE: CASE EVENT DATE: 20250101
